FAERS Safety Report 18580185 (Version 2)
Quarter: 2021Q1

REPORT INFORMATION
  Report Type: Spontaneous
  Country: US (occurrence: US)
  Receive Date: 20201204
  Receipt Date: 20210110
  Transmission Date: 20210419
  Serious: Yes (Other)
  Sender: FDA-Public Use
  Company Number: US-AMGEN-USASP2020194449

PATIENT
  Age: 56 Year
  Sex: Female
  Weight: 113.4 kg

DRUGS (9)
  1. POTASSIUM [Concomitant]
     Active Substance: POTASSIUM
     Dosage: UNK, QOD
  2. OTEZLA [Suspect]
     Active Substance: APREMILAST
     Indication: PSORIATIC ARTHROPATHY
     Dosage: UNK
     Route: 048
     Dates: start: 201905
  3. XELJANZ XR [Suspect]
     Active Substance: TOFACITINIB CITRATE
     Dosage: 11 MILLIGRAM, QD
     Route: 048
     Dates: start: 201912, end: 202005
  4. XELJANZ XR [Suspect]
     Active Substance: TOFACITINIB CITRATE
     Dosage: 11 MILLIGRAM, QD
     Route: 048
     Dates: start: 202006, end: 20201020
  5. LOSARTAN. [Concomitant]
     Active Substance: LOSARTAN
     Dosage: UNK
  6. XELJANZ XR [Suspect]
     Active Substance: TOFACITINIB CITRATE
     Indication: PSORIATIC ARTHROPATHY
     Dosage: 11 MILLIGRAM, QD
     Route: 048
  7. XELJANZ XR [Suspect]
     Active Substance: TOFACITINIB CITRATE
     Dosage: 11 MILLIGRAM, QD
     Route: 048
     Dates: start: 201906
  8. LASIX [Concomitant]
     Active Substance: FUROSEMIDE
     Dosage: UNK
  9. MELOXICAM. [Concomitant]
     Active Substance: MELOXICAM
     Dosage: UNK

REACTIONS (3)
  - Subcutaneous abscess [Not Recovered/Not Resolved]
  - Malignant melanoma [Not Recovered/Not Resolved]
  - Knee arthroplasty [Unknown]

NARRATIVE: CASE EVENT DATE: 202010
